FAERS Safety Report 24406657 (Version 1)
Quarter: 2024Q4

REPORT INFORMATION
  Report Type: Spontaneous
  Country: US (occurrence: None)
  Receive Date: 20241006
  Receipt Date: 20241006
  Transmission Date: 20250115
  Serious: Yes (Other)
  Sender: Public
  Company Number: None

PATIENT
  Age: 67 Year
  Sex: Female
  Weight: 86.85 kg

DRUGS (1)
  1. COZAAR [Suspect]
     Active Substance: LOSARTAN POTASSIUM
     Indication: Blood pressure measurement
     Dosage: OTHER QUANTITY : 1 TABLET(S);?
     Route: 048

REACTIONS (10)
  - Palpitations [None]
  - Flushing [None]
  - Blood pressure increased [None]
  - Limb discomfort [None]
  - Vision blurred [None]
  - Gingival bleeding [None]
  - Asthenia [None]
  - Dizziness [None]
  - Nausea [None]
  - Paraesthesia [None]

NARRATIVE: CASE EVENT DATE: 20240918
